FAERS Safety Report 7349553-4 (Version None)
Quarter: 2011Q1

REPORT INFORMATION
  Report Type: 
  Country: None (occurrence: None)
  Receive Date: 20110304
  Receipt Date: 20100311
  Transmission Date: 20110831
  Serious: Yes (Other)
  Sender: FDA-Public Use
  Company Number: JP 2010 0006

PATIENT
  Age: 50 Year
  Sex: Male

DRUGS (3)
  1. GELPART (ABSORBABLE GELATIN SPONGE) [Suspect]
     Indication: THERAPEUTIC EMBOLISATION
     Dosage: INTAKE RATE: 1/1
     Route: 013
  2. LIPIODOL (ETHOIDIZED OIL) [Suspect]
     Indication: THERAPEUTIC EMBOLISATION
     Dosage: INTAKE RATE: 1/1
     Route: 013
  3. EPIRUBICIN HYDROCHLORIDE [Suspect]
     Indication: THERAPEUTIC EMBOLISATION
     Dosage: 20 MG (20 MG, INTAKE RATE: 1/1)
     Route: 013

REACTIONS (10)
  - OFF LABEL USE [None]
  - HEPATIC NEOPLASM MALIGNANT [None]
  - OPERATIVE HAEMORRHAGE [None]
  - GLYCOSYLATED HAEMOGLOBIN INCREASED [None]
  - SARCOMA [None]
  - WHITE BLOOD CELL COUNT DECREASED [None]
  - BLOOD ALKALINE PHOSPHATASE INCREASED [None]
  - BILE DUCT CANCER [None]
  - HEPATIC CIRRHOSIS [None]
  - PLATELET COUNT DECREASED [None]
